FAERS Safety Report 17192072 (Version 1)
Quarter: 2019Q4

REPORT INFORMATION
  Report Type: Report from Study
  Country: DE (occurrence: DE)
  Receive Date: 20191223
  Receipt Date: 20191223
  Transmission Date: 20200122
  Serious: Yes (Congenital Anomaly, Other)
  Sender: FDA-Public Use
  Company Number: DE-TEVA-2019-DE-1156772

PATIENT
  Sex: Male

DRUGS (3)
  1. PARACETAMOL [Suspect]
     Active Substance: ACETAMINOPHEN
     Indication: PYREXIA
     Dosage: 500-1000 MG/DAY, BETWEEN GESTATIONAL WEEKS 12 AND 14
     Route: 064
  2. AMOXICILLIN. [Suspect]
     Active Substance: AMOXICILLIN
     Dosage: DURING THE SECOND TRIMESTER
     Route: 064
  3. SERTRALINE [Suspect]
     Active Substance: SERTRALINE HYDROCHLORIDE
     Dosage: DURING ALL TRIMESTERS
     Route: 064

REACTIONS (3)
  - Patent ductus arteriosus [Recovering/Resolving]
  - Thrombosis [Recovering/Resolving]
  - Foetal exposure during pregnancy [Unknown]
